FAERS Safety Report 9466919 (Version 3)
Quarter: 2013Q4

REPORT INFORMATION
  Report Type: Spontaneous
  Country: DE (occurrence: DE)
  Receive Date: 20130820
  Receipt Date: 20131122
  Transmission Date: 20140711
  Serious: Yes (Other)
  Sender: FDA-Public Use
  Company Number: DE-PFIZER INC-2013235355

PATIENT
  Age: 7 Month
  Sex: Female

DRUGS (19)
  1. REVATIO [Suspect]
     Indication: PULMONARY ARTERIAL HYPERTENSION
     Dosage: 1.6  MG/ML SINGLE
     Route: 042
     Dates: start: 20130813, end: 20130813
  2. ADRENALIN [Concomitant]
     Dosage: UNK
  3. MIDAZOLAM [Concomitant]
     Dosage: UNK
  4. SUFENTANIL [Concomitant]
     Dosage: UNK
  5. FUROSEMID [Concomitant]
     Dosage: UNK
  6. OMEPRAZOL [Concomitant]
     Dosage: UNK
  7. DAPTOMYCIN [Concomitant]
     Dosage: UNK
  8. CIPROFLOXACIN [Concomitant]
     Dosage: UNK
  9. MEROPENEM [Concomitant]
     Dosage: UNK
  10. ERYTHROMYCIN [Concomitant]
     Dosage: UNK
  11. KETAMIN S [Concomitant]
     Dosage: UNK
  12. REOMAX [Concomitant]
     Dosage: UNK
  13. PHENOBARBITAL [Concomitant]
     Dosage: UNK
  14. ACC [Concomitant]
     Dosage: UNK
  15. HYDROCORTISON [Concomitant]
     Dosage: UNK
  16. L-THYROXIN [Concomitant]
     Dosage: UNK
  17. ALDACTONE [Concomitant]
     Dosage: UNK
  18. URSOFALK [Concomitant]
     Dosage: UNK
  19. HEPARIN [Concomitant]
     Dosage: UNK

REACTIONS (3)
  - Off label use [Recovered/Resolved]
  - Hypotension [Recovered/Resolved]
  - Renal impairment [Unknown]
